FAERS Safety Report 5126046-6 (Version None)
Quarter: 2006Q4

REPORT INFORMATION
  Report Type: 
  Country: None (occurrence: None)
  Receive Date: 20061012
  Receipt Date: 20060113
  Transmission Date: 20070319
  Serious: Yes (Other)
  Sender: FDA-Public Use
  Company Number: US-ROCHE-432336

PATIENT
  Age: 17 Year
  Sex: Female
  Weight: 63.5 kg

DRUGS (1)
  1. ACCUTANE [Suspect]
     Indication: ACNE
     Dosage: 1 X 40MG ON ODD DAYS AND 2 X 40MG ON EVEN DAYS
     Route: 048
     Dates: start: 19950215, end: 19950726

REACTIONS (45)
  - ABDOMINAL PAIN [None]
  - ANOREXIA [None]
  - ANXIETY [None]
  - BACK PAIN [None]
  - BINGE EATING [None]
  - BRONCHITIS [None]
  - BRONCHITIS ACUTE [None]
  - BRONCHOPNEUMONIA [None]
  - BULIMIA NERVOSA [None]
  - CHRONIC SINUSITIS [None]
  - COLITIS [None]
  - COLITIS ULCERATIVE [None]
  - DEHYDRATION [None]
  - DRY SKIN [None]
  - EXOSTOSIS [None]
  - EYE DISORDER [None]
  - FATIGUE [None]
  - FEAR OF WEIGHT GAIN [None]
  - FLUSHING [None]
  - GASTROENTERITIS [None]
  - HAEMOPHILUS INFECTION [None]
  - HAEMORRHOIDS [None]
  - INFLAMMATORY BOWEL DISEASE [None]
  - INFLUENZA [None]
  - IRRITABLE BOWEL SYNDROME [None]
  - MELANOCYTIC NAEVUS [None]
  - MENTAL DISORDER [None]
  - MULTIPLE ALLERGIES [None]
  - MUSCLE SPASMS [None]
  - MUSCULOSKELETAL PAIN [None]
  - MYALGIA [None]
  - MYOFASCIAL PAIN SYNDROME [None]
  - NAUSEA [None]
  - NECK INJURY [None]
  - PHARYNGITIS [None]
  - PITYRIASIS LICHENOIDES ET VARIOLIFORMIS ACUTA [None]
  - RESPIRATORY TRACT INFECTION [None]
  - TACHYCARDIA [None]
  - TENDONITIS [None]
  - TORTICOLLIS [None]
  - TREMOR [None]
  - UPPER RESPIRATORY TRACT INFECTION [None]
  - VIRAL PHARYNGITIS [None]
  - VIRAL UPPER RESPIRATORY TRACT INFECTION [None]
  - VOMITING [None]
